FAERS Safety Report 9490346 (Version 1)
Quarter: 2013Q3

REPORT INFORMATION
  Report Type: Spontaneous
  Country: US (occurrence: US)
  Receive Date: 20130830
  Receipt Date: 20130830
  Transmission Date: 20140515
  Serious: Yes (Hospitalization)
  Sender: FDA-Public Use
  Company Number: US-AMGEN-USASP2013059823

PATIENT
  Age: 67 Year
  Sex: Male

DRUGS (2)
  1. ENBREL [Suspect]
     Indication: PSORIASIS
     Dosage: UNK
     Route: 065
  2. ENBREL [Suspect]
     Indication: ARTHRITIS

REACTIONS (5)
  - Multi-organ failure [Not Recovered/Not Resolved]
  - Rash macular [Unknown]
  - Skin discolouration [Unknown]
  - Dyspnoea [Not Recovered/Not Resolved]
  - Infection [Unknown]
